FAERS Safety Report 9790009 (Version 1)
Quarter: 2013Q4

REPORT INFORMATION
  Report Type: Spontaneous
  Country: US (occurrence: US)
  Receive Date: 20131231
  Receipt Date: 20131231
  Transmission Date: 20140711
  Serious: Yes (Other)
  Sender: FDA-Public Use
  Company Number: US-ASTRAZENECA-2013SE94218

PATIENT
  Age: 734 Month
  Sex: Female
  Weight: 93.9 kg

DRUGS (21)
  1. TOPROL XL [Suspect]
     Indication: HYPERTENSION
     Route: 048
  2. SEROQUEL [Suspect]
     Indication: MAJOR DEPRESSION
     Route: 048
     Dates: start: 20130425
  3. DIAZEPAM [Concomitant]
     Indication: PANIC ATTACK
     Route: 048
     Dates: start: 200806
  4. ZOLOFT [Concomitant]
     Indication: DEPRESSION
     Route: 048
     Dates: start: 2008, end: 2009
  5. SYNTHROID [Concomitant]
     Indication: THYROID DISORDER
     Route: 048
     Dates: start: 2011, end: 20131203
  6. SYNTHROID [Concomitant]
     Indication: THYROID DISORDER
     Route: 048
     Dates: start: 20131203
  7. VESICARE [Concomitant]
     Indication: BLADDER DISORDER
     Route: 048
     Dates: start: 2010, end: 2011
  8. VESICARE [Concomitant]
     Indication: BLADDER DISORDER
     Route: 048
     Dates: start: 2011
  9. PRAVASTATIN [Concomitant]
     Indication: BLOOD CHOLESTEROL ABNORMAL
     Route: 048
     Dates: start: 2008
  10. CHLORTHALIDONE [Concomitant]
     Indication: HYPERTENSION
     Route: 048
     Dates: start: 201311
  11. HCTZ [Concomitant]
     Indication: BLOOD PRESSURE ABNORMAL
     Route: 048
     Dates: start: 1999, end: 201311
  12. BUSPAR [Concomitant]
     Indication: ANXIETY
     Route: 048
     Dates: start: 200806, end: 20130425
  13. BUSPAR [Concomitant]
     Indication: ANXIETY
     Route: 048
     Dates: start: 20130425
  14. WELLBUTRIN XL [Concomitant]
     Indication: DEPRESSION
     Route: 048
     Dates: start: 2013, end: 201312
  15. WELLBUTRIN XL [Concomitant]
     Indication: DEPRESSION
     Route: 048
     Dates: start: 201312
  16. ALLOPURINOL [Concomitant]
     Indication: GOUTY ARTHRITIS
     Route: 048
     Dates: start: 201302
  17. INDOCIN [Concomitant]
     Indication: GOUT
     Route: 048
     Dates: start: 201302
  18. XYAL [Concomitant]
     Indication: PRURITUS
     Route: 048
     Dates: start: 2010
  19. DAIRY DIGESTIVE SUPPLEMENT [Concomitant]
     Indication: NUTRITIONAL SUPPLEMENTATION
     Dosage: DAILY
     Route: 048
     Dates: start: 2002
  20. KONSYL [Concomitant]
     Indication: NUTRITIONAL SUPPLEMENTATION
     Dosage: BID
     Route: 048
     Dates: start: 2010, end: 201010
  21. ANTIPYRINE BENZOCAINE [Concomitant]
     Indication: EAR DISORDER
     Dosage: PRN
     Route: 050
     Dates: start: 201302

REACTIONS (10)
  - Renal failure chronic [Unknown]
  - Ear pain [Unknown]
  - Hyperthyroidism [Unknown]
  - Nasal discomfort [Not Recovered/Not Resolved]
  - Eye pruritus [Not Recovered/Not Resolved]
  - Skin discolouration [Unknown]
  - Rash papular [Unknown]
  - Rash pruritic [Unknown]
  - Rash [Unknown]
  - Off label use [Unknown]
